FAERS Safety Report 4960806-7 (Version None)
Quarter: 2006Q1

REPORT INFORMATION
  Report Type: 
  Country: None (occurrence: None)
  Receive Date: 20060331
  Receipt Date: 20060331
  Transmission Date: 20060701
  Serious: No
  Sender: FDA-Public Use
  Company Number: None

PATIENT
  Age: 68 Year
  Sex: Female
  Weight: 117.028 kg

DRUGS (2)
  1. RAZADYNE [Suspect]
     Dates: start: 20060327, end: 20060329
  2. ROZEREM [Suspect]

REACTIONS (3)
  - DRUG DISPENSING ERROR [None]
  - INCORRECT DOSE ADMINISTERED [None]
  - MEDICATION ERROR [None]
